FAERS Safety Report 6021793-6 (Version None)
Quarter: 2008Q4

REPORT INFORMATION
  Report Type: 
  Country: None (occurrence: None)
  Receive Date: 20081229
  Receipt Date: 20081222
  Transmission Date: 20090506
  Serious: Yes (Other)
  Sender: FDA-Public Use
  Company Number: JP-WYE-H07340108

PATIENT
  Age: 80 Year
  Sex: Male

DRUGS (8)
  1. ARTANE [Suspect]
     Indication: PARKINSON'S DISEASE
     Route: 048
     Dates: start: 20081010, end: 20081218
  2. CARBIDOPA [Concomitant]
     Route: 048
     Dates: start: 20080910
  3. NITOROL [Concomitant]
     Route: 048
  4. SIGMART [Concomitant]
     Route: 048
  5. MEVALOTIN [Concomitant]
     Route: 048
  6. WARFARIN [Concomitant]
     Route: 048
  7. LEVODOPA [Concomitant]
     Route: 048
     Dates: start: 20080910
  8. AMLODIN [Concomitant]
     Route: 048

REACTIONS (1)
  - DEMENTIA [None]
